FAERS Safety Report 17659709 (Version 2)
Quarter: 2020Q2

REPORT INFORMATION
  Report Type: Report from Study
  Country: FR (occurrence: FR)
  Receive Date: 20200413
  Receipt Date: 20200424
  Transmission Date: 20200713
  Serious: No
  Sender: FDA-Public Use
  Company Number: NVSC2020FR092203

PATIENT
  Age: 54 Year
  Sex: Female
  Weight: 160 kg

DRUGS (3)
  1. ALPELISIB [Suspect]
     Active Substance: ALPELISIB
     Dosage: 300 MG, QD
     Route: 048
     Dates: start: 20200330
  2. ALPELISIB [Suspect]
     Active Substance: ALPELISIB
     Indication: BREAST CANCER
     Dosage: 300 MG
     Route: 048
     Dates: start: 20200309, end: 20200321
  3. OROCAL [Concomitant]
     Indication: PRODUCT USED FOR UNKNOWN INDICATION
     Dosage: UNK
     Route: 065

REACTIONS (9)
  - Toxic skin eruption [Unknown]
  - Pruritus [Recovered/Resolved]
  - Skin reaction [Recovered/Resolved]
  - Nausea [Unknown]
  - Erythema [Unknown]
  - Pyrexia [Unknown]
  - Rash macular [Recovered/Resolved]
  - Pyrexia [Recovered/Resolved]
  - Rash pruritic [Unknown]

NARRATIVE: CASE EVENT DATE: 20200321
